FAERS Safety Report 15361855 (Version 1)
Quarter: 2018Q3

REPORT INFORMATION
  Report Type: Spontaneous
  Country: US (occurrence: US)
  Receive Date: 20180907
  Receipt Date: 20180907
  Transmission Date: 20181010
  Serious: No
  Sender: FDA-Public Use
  Company Number: US-009507513-1808USA012035

PATIENT
  Age: 33 Year
  Sex: Female
  Weight: 143.76 kg

DRUGS (1)
  1. NEXPLANON [Suspect]
     Active Substance: ETONOGESTREL
     Dosage: ROD, LEFT ARM
     Route: 059
     Dates: start: 20180824

REACTIONS (4)
  - Device difficult to use [Recovered/Resolved]
  - Complication associated with device [Recovered/Resolved]
  - Product quality issue [Recovered/Resolved]
  - No adverse event [Unknown]

NARRATIVE: CASE EVENT DATE: 20180824
